FAERS Safety Report 10108931 (Version 1)
Quarter: 2014Q2

REPORT INFORMATION
  Report Type: Spontaneous
  Country: US (occurrence: US)
  Receive Date: 20140425
  Receipt Date: 20140425
  Transmission Date: 20141212
  Serious: No
  Sender: FDA-Public Use
  Company Number: US-ENDO PHARMACEUTICALS INC.-MODA20140003

PATIENT
  Sex: Male

DRUGS (1)
  1. MODAFINIL TABLETS 200MG [Suspect]
     Indication: APNOEA
     Route: 048
     Dates: start: 201401

REACTIONS (3)
  - Dysgeusia [Not Recovered/Not Resolved]
  - Somnolence [Not Recovered/Not Resolved]
  - Drug ineffective [Not Recovered/Not Resolved]
